FAERS Safety Report 9696709 (Version 2)
Quarter: 2015Q3

REPORT INFORMATION
  Report Type: Spontaneous
  Country: US (occurrence: US)
  Receive Date: 20131119
  Receipt Date: 20150803
  Transmission Date: 20151125
  Serious: No
  Sender: FDA-Public Use
  Company Number: US-GILEAD-2007-0014087

PATIENT
  Age: 47 Year
  Sex: Female
  Weight: 52.16 kg

DRUGS (8)
  1. LETAIRIS [Suspect]
     Active Substance: AMBRISENTAN
     Indication: PULMONARY ARTERIAL HYPERTENSION
     Route: 048
     Dates: start: 20070928
  2. FLONASE [Concomitant]
     Active Substance: FLUTICASONE PROPIONATE
     Route: 045
  3. FEXOFENADINE [Concomitant]
     Active Substance: FEXOFENADINE\FEXOFENADINE HYDROCHLORIDE
     Route: 048
  4. POTASSIUM CHLORIDE. [Concomitant]
     Active Substance: POTASSIUM CHLORIDE
     Route: 048
  5. MENEST [Concomitant]
     Active Substance: ESTROGENS, ESTERIFIED
     Route: 048
  6. PENTAMIDINE [Concomitant]
     Active Substance: PENTAMIDINE
     Route: 055
  7. VERAPAMIL [Concomitant]
     Active Substance: VERAPAMIL HYDROCHLORIDE
     Route: 048
  8. HYDROCHLOROTHRAZIDE [Concomitant]
     Route: 048

REACTIONS (1)
  - Alopecia [Not Recovered/Not Resolved]
